FAERS Safety Report 5040479-8 (Version None)
Quarter: 2006Q2

REPORT INFORMATION
  Report Type: 
  Country: None (occurrence: None)
  Receive Date: 20060627
  Receipt Date: 20060627
  Transmission Date: 20061013
  Serious: Yes (Other)
  Sender: FDA-Public Use
  Company Number: None

PATIENT
  Age: 73 Year
  Sex: Male

DRUGS (1)
  1. AMOXICILLIN + CLAVULANATE POTASSIUM [Suspect]
     Indication: OSTEOMYELITIS
     Dosage: 500 MG / 125 MG Q 8H PO
     Route: 048
     Dates: start: 20060113, end: 20060224

REACTIONS (1)
  - HEPATITIS [None]
